FAERS Safety Report 9326363 (Version 3)
Quarter: 2013Q3

REPORT INFORMATION
  Report Type: Spontaneous
  Country: JP (occurrence: JP)
  Receive Date: 20130604
  Receipt Date: 20130801
  Transmission Date: 20140515
  Serious: Yes (Death)
  Sender: FDA-Public Use
  Company Number: JP-ELI_LILLY_AND_COMPANY-JP201305009677

PATIENT
  Age: 85 Year
  Sex: Male

DRUGS (13)
  1. ALIMTA [Suspect]
     Indication: NON-SMALL CELL LUNG CANCER RECURRENT
     Dosage: 630 MG, UNK
     Route: 042
     Dates: start: 20130523, end: 20130523
  2. PANVITAN [Concomitant]
     Dosage: 1 G, EACH MORNING
     Route: 048
  3. TRANEXAMIC ACID [Concomitant]
     Dosage: 250 MG, TID
     Route: 048
  4. TOWAMIN [Concomitant]
     Dosage: 25 MG, QD
  5. GASPORT [Concomitant]
     Dosage: 10 MG, BID
  6. CRESTOR [Concomitant]
     Dosage: 5 MG, EACH MORNING
     Route: 048
  7. BENIDIPINE [Concomitant]
     Dosage: 2 MG, EACH MORNING
     Route: 048
  8. DAIKENTYUTO [Concomitant]
     Dosage: 2.5 G, TID
     Route: 048
  9. ETICALM [Concomitant]
     Dosage: 0.5 MG, EACH EVENING
  10. FLUMETHOLON [Concomitant]
     Route: 047
  11. MOXIFLOXACIN [Concomitant]
     Route: 047
  12. TAMSULOSIN [Concomitant]
     Dosage: 0.2 MG, QD
  13. FRESMIN S [Concomitant]
     Dosage: UNK
     Dates: start: 20130418

REACTIONS (3)
  - Pneumonia bacterial [Fatal]
  - Septic shock [Fatal]
  - White blood cell count decreased [Not Recovered/Not Resolved]
